FAERS Safety Report 7637867-X (Version None)
Quarter: 2011Q3

REPORT INFORMATION
  Report Type: 
  Country: None (occurrence: None)
  Receive Date: 20110727
  Receipt Date: 20110721
  Transmission Date: 20111222
  Serious: Yes (Other)
  Sender: FDA-Public Use
  Company Number: PR-JNJFOC-20110709454

PATIENT
  Sex: Male

DRUGS (5)
  1. KLONOPIN [Concomitant]
  2. METHOTREXATE [Concomitant]
  3. SIMPONI [Suspect]
     Indication: RHEUMATOID ARTHRITIS
     Route: 058
     Dates: start: 20110720
  4. FOLIC ACID [Concomitant]
  5. MOBIC [Concomitant]

REACTIONS (2)
  - DYSARTHRIA [None]
  - ATAXIA [None]
